FAERS Safety Report 10481280 (Version 2)
Quarter: 2014Q3

REPORT INFORMATION
  Report Type: Spontaneous
  Country: US (occurrence: US)
  Receive Date: 20140929
  Receipt Date: 20140929
  Transmission Date: 20150326
  Serious: Yes (Hospitalization, Other)
  Sender: FDA-Public Use
  Company Number: US-RB PHARMACEUTICALS LIMITED-RB-68702-2014

PATIENT
  Age: 38 Year
  Sex: Female

DRUGS (2)
  1. BUPRENORPHINE GENERIC TAB [Suspect]
     Active Substance: BUPRENORPHINE
     Indication: DRUG DEPENDENCE
     Dosage: DOSING DETAILS UNKNOWN
     Route: 060
  2. SUBOXONE [Suspect]
     Active Substance: BUPRENORPHINE HYDROCHLORIDE\NALOXONE HYDROCHLORIDE
     Indication: DRUG DEPENDENCE
     Dosage: ONE SUBOXONE TABLET IN MORNING AND ONE TABLET IN EVENING
     Route: 060

REACTIONS (2)
  - Uterine disorder [Recovered/Resolved]
  - Hysterectomy [None]
